FAERS Safety Report 14256178 (Version 2)
Quarter: 2018Q1

REPORT INFORMATION
  Report Type: Spontaneous
  Country: US (occurrence: US)
  Receive Date: 20171206
  Receipt Date: 20180305
  Transmission Date: 20180508
  Serious: No
  Sender: FDA-Public Use
  Company Number: US-ACTELION-A-NJ2017-163225

PATIENT
  Age: 58 Year
  Sex: Female

DRUGS (7)
  1. IRON [Concomitant]
     Active Substance: IRON
  2. GABAPENTIN. [Concomitant]
     Active Substance: GABAPENTIN
  3. FUROSEMIDE. [Concomitant]
     Active Substance: FUROSEMIDE
  4. CARVEDILOL. [Concomitant]
     Active Substance: CARVEDILOL
  5. OPSUMIT [Suspect]
     Active Substance: MACITENTAN
     Indication: PULMONARY ARTERIAL HYPERTENSION
     Dosage: 10 MG, UNK
     Route: 048
  6. WARFARIN [Concomitant]
     Active Substance: WARFARIN
  7. POTASSIUM CHLORIDE. [Concomitant]
     Active Substance: POTASSIUM CHLORIDE

REACTIONS (3)
  - Feeling abnormal [Unknown]
  - Drug dose omission [Unknown]
  - Eye disorder [Unknown]
